FAERS Safety Report 4392664-6 (Version None)
Quarter: 2004Q3

REPORT INFORMATION
  Report Type: 
  Country: None (occurrence: None)
  Receive Date: 20040708
  Receipt Date: 20040202
  Transmission Date: 20050211
  Serious: Yes (Life-Threatening, Hospitalization, Disabling)
  Sender: FDA-Public Use
  Company Number: PHBS2004JP01588

PATIENT
  Age: 17 Year
  Sex: Female

DRUGS (4)
  1. TEGRETOL [Suspect]
     Indication: EPILEPSY
     Dosage: 100 MG, TID
     Route: 048
     Dates: start: 20020801, end: 20040201
  2. TEGRETOL [Suspect]
     Dosage: 100 TABLETS, ONCE/SINGLE
     Route: 048
     Dates: start: 20040201, end: 20040201
  3. MIDAZOLAM HCL [Suspect]
  4. PHENYTOIN [Suspect]

REACTIONS (10)
  - CHEST PAIN [None]
  - DEEP VEIN THROMBOSIS [None]
  - DEPRESSED LEVEL OF CONSCIOUSNESS [None]
  - DRUG TOXICITY [None]
  - HOMANS' SIGN [None]
  - OEDEMA PERIPHERAL [None]
  - OVERDOSE [None]
  - PO2 DECREASED [None]
  - PULMONARY EMBOLISM [None]
  - SUICIDAL IDEATION [None]
